FAERS Safety Report 13065593 (Version 1)
Quarter: 2016Q4

REPORT INFORMATION
  Report Type: Spontaneous
  Country: US (occurrence: US)
  Receive Date: 20161227
  Receipt Date: 20161227
  Transmission Date: 20170207
  Serious: Yes (Other)
  Sender: FDA-Public Use
  Company Number: US-IPCA LABORATORIES LIMITED-IPC201612-001014

PATIENT
  Age: 30 Year
  Sex: Male

DRUGS (6)
  1. PRIMAQUINE [Suspect]
     Active Substance: PRIMAQUINE PHOSPHATE
     Indication: MALARIA
  2. DOMPERIDONE [Suspect]
     Active Substance: DOMPERIDONE
  3. CHLOROQUINE PHOSPHATE. [Suspect]
     Active Substance: CHLOROQUINE PHOSPHATE
     Indication: MALARIA
  4. OMEPRAZOLE. [Suspect]
     Active Substance: OMEPRAZOLE
  5. CHLORDIAZEPOXIDE/CLIDINIUM BROMIDE [Suspect]
     Active Substance: CHLORDIAZEPOXIDE\CLIDINIUM BROMIDE
  6. MEFLOQUINE [Suspect]
     Active Substance: MEFLOQUINE
     Indication: MALARIA

REACTIONS (5)
  - Toxicity to various agents [Recovered/Resolved]
  - Dizziness [Recovered/Resolved]
  - Chorioretinopathy [Recovered/Resolved]
  - Drug interaction [Recovered/Resolved]
  - Diplopia [Recovered/Resolved]
